FAERS Safety Report 19909978 (Version 1)
Quarter: 2021Q4

REPORT INFORMATION
  Report Type: Spontaneous
  Country: US (occurrence: US)
  Receive Date: 20211003
  Receipt Date: 20211003
  Transmission Date: 20220303
  Serious: No
  Sender: FDA-Public Use
  Company Number: US-NOVARTISTESTPH-NVSC2021US223075

PATIENT
  Sex: Male
  Weight: 81.65 kg

DRUGS (2)
  1. ILARIS [Suspect]
     Active Substance: CANAKINUMAB
     Indication: Product used for unknown indication
     Dosage: 150 MG, 9EVERY 28 DAYS)
     Route: 042
  2. ILARIS [Suspect]
     Active Substance: CANAKINUMAB
     Dosage: 300 UNK, (EVERY 28 DAYS)
     Route: 042

REACTIONS (2)
  - Drug resistance [Unknown]
  - Drug ineffective [Unknown]
